FAERS Safety Report 12083572 (Version 1)
Quarter: 2016Q1

REPORT INFORMATION
  Report Type: Spontaneous
  Country: US (occurrence: None)
  Receive Date: 20160216
  Receipt Date: 20160216
  Transmission Date: 20160526
  Serious: Yes (Other)
  Sender: FDA-Public Use
  Company Number: None

PATIENT
  Age: 51 Year
  Sex: Male
  Weight: 220 kg

DRUGS (1)
  1. DIMETHYL  FUMARATE [Suspect]
     Active Substance: DIMETHYL FUMARATE
     Indication: MULTIPLE SCLEROSIS
     Route: 048
     Dates: start: 20150217, end: 20151119

REACTIONS (2)
  - Lymphopenia [None]
  - Leukopenia [None]

NARRATIVE: CASE EVENT DATE: 20151119
